FAERS Safety Report 5005743-7 (Version None)
Quarter: 2006Q1

REPORT INFORMATION
  Report Type: 
  Country: None (occurrence: None)
  Receive Date: 20060320
  Receipt Date: 20051219
  Transmission Date: 20060701
  Serious: Yes (Other)
  Sender: FDA-Public Use
  Company Number: 2005-12-1019

PATIENT
  Age: 49 Year
  Sex: Female
  Weight: 72.5755 kg

DRUGS (7)
  1. PEG-INTRON [Suspect]
     Indication: HEPATITIS C
     Dosage: 0.4 ML QWK
     Dates: start: 20051115
  2. RIBAVIRIN [Suspect]
     Indication: HEPATITIS C
     Dosage: 800 MG BID ORAL
     Route: 048
     Dates: start: 20051115
  3. NEURONTIN [Concomitant]
  4. ENALAPRIL [Concomitant]
  5. DEXAMETHASONE TAB [Concomitant]
  6. PAXIL [Concomitant]
  7. RISPERDAL [Concomitant]

REACTIONS (3)
  - ASTHENIA [None]
  - DEPRESSION [None]
  - FATIGUE [None]
